FAERS Safety Report 14137378 (Version 2)
Quarter: 2017Q4

REPORT INFORMATION
  Report Type: Spontaneous
  Country: US (occurrence: US)
  Receive Date: 20171027
  Receipt Date: 20171130
  Transmission Date: 20180321
  Serious: No
  Sender: FDA-Public Use
  Company Number: US-GLAXOSMITHKLINE-US2017164331

PATIENT
  Sex: Female

DRUGS (5)
  1. TANZEUM [Suspect]
     Active Substance: ALBIGLUTIDE
     Indication: TYPE 2 DIABETES MELLITUS
     Dosage: 50 MG, WE
     Route: 058
  2. ALLOPURINOL. [Concomitant]
     Active Substance: ALLOPURINOL
  3. LEVEMIR [Concomitant]
     Active Substance: INSULIN DETEMIR
  4. ASPIRIN. [Concomitant]
     Active Substance: ASPIRIN
  5. NOVOLOG [Concomitant]
     Active Substance: INSULIN ASPART

REACTIONS (4)
  - Wrong technique in device usage process [Unknown]
  - Product quality issue [Unknown]
  - Underdose [Unknown]
  - Injection site haemorrhage [Recovered/Resolved]
